FAERS Safety Report 23821124 (Version 9)
Quarter: 2024Q3

REPORT INFORMATION
  Report Type: Spontaneous
  Country: US (occurrence: US)
  Receive Date: 20240506
  Receipt Date: 20240819
  Transmission Date: 20241017
  Serious: No
  Sender: PFIZER
  Company Number: US-PFIZER INC-202400099485

PATIENT
  Age: 12 Year
  Sex: Female
  Weight: 39.909 kg

DRUGS (1)
  1. GENOTROPIN [Suspect]
     Active Substance: SOMATROPIN
     Indication: Short stature
     Dosage: 1.6 MG, 1X/DAY

REACTIONS (2)
  - Device breakage [Unknown]
  - Drug dose omission by device [Unknown]
